FAERS Safety Report 10041994 (Version 1)
Quarter: 2014Q1

REPORT INFORMATION
  Report Type: Spontaneous
  Country: US (occurrence: US)
  Receive Date: 20140327
  Receipt Date: 20140327
  Transmission Date: 20141002
  Serious: Yes (Hospitalization, Other)
  Sender: FDA-Public Use
  Company Number: US-BRISTOL-MYERS SQUIBB COMPANY-20492799

PATIENT
  Age: 50 Year
  Sex: Female

DRUGS (2)
  1. WARFARIN SODIUM [Suspect]
     Indication: DEEP VEIN THROMBOSIS
  2. WARFARIN SODIUM [Suspect]
     Indication: PULMONARY EMBOLISM

REACTIONS (7)
  - Cerebrovascular accident [Unknown]
  - Arterial thrombosis [Unknown]
  - Gastric haemorrhage [Unknown]
  - Aortic stenosis [Unknown]
  - Mitral valve prolapse [Unknown]
  - Atrial fibrillation [Unknown]
  - Anaemia [Unknown]
